FAERS Safety Report 22131464 (Version 2)
Quarter: 2023Q2

REPORT INFORMATION
  Report Type: Spontaneous
  Country: US (occurrence: US)
  Receive Date: 20230323
  Receipt Date: 20230601
  Transmission Date: 20230722
  Serious: No
  Sender: FDA-Public Use
  Company Number: US-ALLERGAN-2303980US

PATIENT
  Sex: Female
  Weight: 50.34 kg

DRUGS (1)
  1. VANIQA [Suspect]
     Active Substance: EFLORNITHINE HYDROCHLORIDE
     Indication: Hair growth abnormal
     Dosage: UNK
     Dates: start: 1990, end: 2022

REACTIONS (5)
  - Skin infection [Unknown]
  - Acne cystic [Unknown]
  - Therapy interrupted [Unknown]
  - Folliculitis [Unknown]
  - Ingrown hair [Unknown]
